FAERS Safety Report 16472249 (Version 1)
Quarter: 2019Q2

REPORT INFORMATION
  Report Type: Report from Study
  Country: CH (occurrence: CH)
  Receive Date: 20190625
  Receipt Date: 20190625
  Transmission Date: 20190711
  Serious: Yes (Hospitalization, Other)
  Sender: FDA-Public Use
  Company Number: CH-ROCHE-2341249

PATIENT

DRUGS (1)
  1. OSELTAMIVIR [Suspect]
     Active Substance: OSELTAMIVIR
     Indication: INFLUENZA
     Route: 048

REACTIONS (48)
  - Alanine aminotransferase increased [Unknown]
  - Oedema [Unknown]
  - Back pain [Unknown]
  - Myalgia [Unknown]
  - Musculoskeletal pain [Unknown]
  - Sleep disorder [Unknown]
  - Hypertension [Unknown]
  - Hypoglycaemia [Unknown]
  - Hyperhidrosis [Unknown]
  - Pulmonary function test decreased [Unknown]
  - Neck pain [Unknown]
  - Decreased appetite [Unknown]
  - Chest discomfort [Unknown]
  - Dysphonia [Unknown]
  - Dyspnoea at rest [Unknown]
  - Thrombocytopenia [Unknown]
  - Nausea [Unknown]
  - Fatigue [Unknown]
  - Weight decreased [Unknown]
  - Dizziness [Unknown]
  - Dyspnoea exertional [Unknown]
  - Weight increased [Unknown]
  - Nervousness [Unknown]
  - Leukocytosis [Unknown]
  - Hypophosphataemia [Unknown]
  - Blood creatinine increased [Unknown]
  - Acute coronary syndrome [Unknown]
  - Vomiting [Unknown]
  - Pyrexia [Unknown]
  - Anxiety [Unknown]
  - Haematoma [Unknown]
  - Leukopenia [Unknown]
  - Diarrhoea [Unknown]
  - Cough [Unknown]
  - Productive cough [Unknown]
  - Constipation [Unknown]
  - Asthenia [Unknown]
  - Cerebellar haemorrhage [Unknown]
  - Blood pressure increased [Unknown]
  - Flank pain [Unknown]
  - Aspartate aminotransferase increased [Unknown]
  - Headache [Unknown]
  - Pain [Unknown]
  - Arthralgia [Unknown]
  - Oropharyngeal pain [Unknown]
  - Musculoskeletal chest pain [Unknown]
  - Pain in extremity [Unknown]
  - Pharyngitis [Unknown]
